FAERS Safety Report 16315947 (Version 1)
Quarter: 2019Q2

REPORT INFORMATION
  Report Type: Spontaneous
  Country: US (occurrence: US)
  Receive Date: 20190515
  Receipt Date: 20190515
  Transmission Date: 20190711
  Serious: No
  Sender: FDA-Public Use
  Company Number: US-SA-2019SA126032

PATIENT
  Age: 84 Year
  Sex: Male

DRUGS (1)
  1. PRALUENT [Suspect]
     Active Substance: ALIROCUMAB
     Indication: BLOOD CHOLESTEROL INCREASED
     Dosage: 150 MG
     Dates: start: 2018

REACTIONS (5)
  - Product dose omission [Unknown]
  - Visual impairment [Unknown]
  - Device issue [Unknown]
  - Condition aggravated [Unknown]
  - Diplopia [Unknown]

NARRATIVE: CASE EVENT DATE: 20190506
